FAERS Safety Report 7367663-2 (Version None)
Quarter: 2011Q1

REPORT INFORMATION
  Report Type: 
  Country: None (occurrence: None)
  Receive Date: 20110314
  Receipt Date: 20110309
  Transmission Date: 20110831
  Serious: Yes (Death)
  Sender: FDA-Public Use
  Company Number: 2011SP010673

PATIENT
  Age: 40 Year
  Sex: Female

DRUGS (1)
  1. ORGARAN [Suspect]
     Indication: VENOUS THROMBOSIS

REACTIONS (1)
  - PULMONARY EMBOLISM [None]
